FAERS Safety Report 9121241 (Version 2)
Quarter: 2013Q1

REPORT INFORMATION
  Report Type: Spontaneous
  Country: JP (occurrence: JP)
  Receive Date: 20130225
  Receipt Date: 20130312
  Transmission Date: 20140127
  Serious: Yes (Other)
  Sender: FDA-Public Use
  Company Number: JP-PFIZER INC-2013066905

PATIENT
  Sex: 0

DRUGS (3)
  1. NORVASC [Suspect]
     Route: 048
  2. TENORMIN [Concomitant]
  3. PANALDINE [Concomitant]

REACTIONS (1)
  - Urinary retention [Recovering/Resolving]
